FAERS Safety Report 25249815 (Version 1)
Quarter: 2025Q2

REPORT INFORMATION
  Report Type: Spontaneous
  Country: US (occurrence: None)
  Receive Date: 20250425
  Receipt Date: 20250425
  Transmission Date: 20250717
  Serious: Yes (Hospitalization)
  Sender: FDA-CTU
  Company Number: None

PATIENT
  Age: 70 Year
  Sex: Male

DRUGS (2)
  1. DEVICE [Suspect]
     Active Substance: DEVICE
  2. NOREPINEPHRINE [Suspect]
     Active Substance: NOREPINEPHRINE

REACTIONS (6)
  - Drug titration error [None]
  - Device programming error [None]
  - Incorrect dose administered [None]
  - Ventricular tachycardia [None]
  - Electrocardiogram ST segment [None]
  - Device computer issue [None]

NARRATIVE: CASE EVENT DATE: 20250423
